FAERS Safety Report 8090739-1 (Version None)
Quarter: 2012Q1

REPORT INFORMATION
  Report Type: 
  Country: None (occurrence: None)
  Receive Date: 20120124
  Receipt Date: 20120117
  Transmission Date: 20120608
  Serious: Yes (Death, Other)
  Sender: FDA-Public Use
  Company Number: 2012SP002850

PATIENT
  Sex: Female

DRUGS (4)
  1. PHENOBARBITAL TAB [Concomitant]
  2. TEMODAL [Suspect]
  3. DEXAMETHASONE [Concomitant]
  4. LEVETIRACETAM [Concomitant]

REACTIONS (2)
  - NEUTROPENIC SEPSIS [None]
  - PANCYTOPENIA [None]
